FAERS Safety Report 10095494 (Version 1)
Quarter: 2014Q2

REPORT INFORMATION
  Report Type: Spontaneous
  Country: GB (occurrence: GB)
  Receive Date: 20140422
  Receipt Date: 20140422
  Transmission Date: 20141212
  Serious: Yes (Other)
  Sender: FDA-Public Use
  Company Number: GB-PFIZER INC-2014107739

PATIENT
  Age: 49 Year
  Sex: Male
  Weight: 63.15 kg

DRUGS (7)
  1. NEURONTIN [Suspect]
     Indication: PAIN
     Dosage: 300 MG, UNK
     Route: 048
     Dates: start: 20140306, end: 20140312
  2. NEURONTIN [Suspect]
     Dosage: 100 MG, UNK
     Route: 048
     Dates: start: 20140306, end: 20140312
  3. OXYNORM [Concomitant]
     Indication: PAIN
     Dosage: 10 MG, UNK
     Route: 048
  4. OMEPRAZOLE [Concomitant]
     Indication: GASTROOESOPHAGEAL REFLUX DISEASE
     Dosage: 20 MG, UNK
     Route: 048
  5. FENTANYL [Concomitant]
     Indication: PAIN
     Dosage: 62.5 UG, UNK
     Route: 061
  6. METOCLOPRAMIDE [Concomitant]
     Indication: NAUSEA
     Dosage: 10 MG, UNK
     Route: 048
  7. PARACETAMOL [Concomitant]
     Indication: PAIN
     Route: 048

REACTIONS (1)
  - Pancytopenia [Not Recovered/Not Resolved]
